FAERS Safety Report 23423379 (Version 2)
Quarter: 2024Q1

REPORT INFORMATION
  Report Type: Report from Study
  Country: CA (occurrence: None)
  Receive Date: 20240119
  Receipt Date: 20240208
  Transmission Date: 20240409
  Serious: Yes (Hospitalization, Other)
  Sender: FDA-Public Use
  Company Number: 2024A011464

PATIENT
  Age: 23978 Day
  Sex: Female

DRUGS (6)
  1. TEZSPIRE [Suspect]
     Active Substance: TEZEPELUMAB-EKKO
     Indication: Asthma
     Dosage: 210.0MG UNKNOWN
     Route: 058
     Dates: start: 20230714
  2. SYMBICORT [Suspect]
     Active Substance: BUDESONIDE\FORMOTEROL FUMARATE DIHYDRATE
     Indication: Asthma
     Dosage: DOSE AND FREQUENCY UNKNOWN UNKNOWN
     Route: 055
  3. ATROVENT [Concomitant]
     Active Substance: IPRATROPIUM BROMIDE
     Dosage: AS REQUIRED
  4. THEOPHYLLINE [Concomitant]
     Active Substance: THEOPHYLLINE
  5. GLYCOPYRROLATE\INDACATEROL\MOMETASONE FUROATE [Concomitant]
     Active Substance: GLYCOPYRROLATE\INDACATEROL\MOMETASONE FUROATE
  6. VENTOLIN [Concomitant]
     Active Substance: ALBUTEROL SULFATE
     Dosage: 100.0UG AS REQUIRED

REACTIONS (8)
  - Asthma [Unknown]
  - Pneumonia [Unknown]
  - Drug ineffective [Unknown]
  - Oxygen saturation decreased [Recovering/Resolving]
  - Illness [Unknown]
  - Nasopharyngitis [Unknown]
  - Back pain [Not Recovered/Not Resolved]
  - Cough [Unknown]

NARRATIVE: CASE EVENT DATE: 20230902
